FAERS Safety Report 5524895-3 (Version None)
Quarter: 2007Q4

REPORT INFORMATION
  Report Type: 
  Country: None (occurrence: None)
  Receive Date: 20071119
  Receipt Date: 20071106
  Transmission Date: 20080405
  Serious: Yes (Hospitalization, Other)
  Sender: FDA-Public Use
  Company Number: A-CH2007-18241

PATIENT
  Age: 42 Year
  Sex: Male

DRUGS (7)
  1. TRACLEER [Suspect]
     Indication: PULMONARY HYPERTENSION
     Dosage: 125 MG, BID, ORAL, 62.5 MG, BID, ORAL
     Route: 048
     Dates: start: 20050501, end: 20071026
  2. TRACLEER [Suspect]
     Indication: PULMONARY HYPERTENSION
     Dosage: 125 MG, BID, ORAL, 62.5 MG, BID, ORAL
     Route: 048
     Dates: start: 20071026
  3. CYCLOPHOSPHAMIDE [Concomitant]
  4. IMMUNOGLOBUIN (IMMUNOGLOBULIN) [Concomitant]
  5. PHENPROCOUMON (PHENPROCOUMON) [Concomitant]
  6. ILOPROST [Concomitant]
  7. SILDENAFIL TABLET [Concomitant]

REACTIONS (4)
  - ALANINE AMINOTRANSFERASE INCREASED [None]
  - ASPARTATE AMINOTRANSFERASE INCREASED [None]
  - CELLULITIS STAPHYLOCOCCAL [None]
  - OEDEMA [None]
